FAERS Safety Report 11176317 (Version 1)
Quarter: 2015Q2

REPORT INFORMATION
  Report Type: Spontaneous
  Country: ES (occurrence: ES)
  Receive Date: 20150610
  Receipt Date: 20150610
  Transmission Date: 20150821
  Serious: Yes (Hospitalization)
  Sender: FDA-Public Use
  Company Number: PHHY2015ES053109

PATIENT
  Age: 83 Year
  Sex: Male

DRUGS (3)
  1. METFORMIN [Concomitant]
     Active Substance: METFORMIN HYDROCHLORIDE
     Indication: PRODUCT USED FOR UNKNOWN INDICATION
     Route: 065
  2. AFINITOR [Suspect]
     Active Substance: EVEROLIMUS
     Indication: METASTATIC RENAL CELL CARCINOMA
     Dosage: 10 MG, UNK
     Route: 048
     Dates: start: 201501
  3. AFINITOR [Suspect]
     Active Substance: EVEROLIMUS
     Dosage: 5 MG, UNK
     Route: 048

REACTIONS (2)
  - Pneumonitis [Recovered/Resolved]
  - Diabetic metabolic decompensation [Recovered/Resolved]
